FAERS Safety Report 21280625 (Version 1)
Quarter: 2022Q3

REPORT INFORMATION
  Report Type: Spontaneous
  Country: KR (occurrence: KR)
  Receive Date: 20220901
  Receipt Date: 20220901
  Transmission Date: 20221026
  Serious: Yes (Other)
  Sender: FDA-Public Use
  Company Number: KR-PFIZER INC-202201088280

PATIENT
  Age: 55 Year
  Sex: Male

DRUGS (9)
  1. CARBOPLATIN [Suspect]
     Active Substance: CARBOPLATIN
     Indication: Non-small cell lung cancer
     Dosage: UNK
  2. VINORELBINE [Suspect]
     Active Substance: VINORELBINE TARTRATE
     Indication: Non-small cell lung cancer
     Dosage: UNK
  3. PEMETREXED [Suspect]
     Active Substance: PEMETREXED
     Indication: Non-small cell lung cancer
     Dosage: UNK
  4. NIVOLUMAB [Suspect]
     Active Substance: NIVOLUMAB
     Indication: Non-small cell lung cancer
     Dosage: UNK
  5. OSIMERTINIB [Suspect]
     Active Substance: OSIMERTINIB
     Indication: Non-small cell lung cancer
     Dosage: UNK
  6. ERLOTINIB [Suspect]
     Active Substance: ERLOTINIB
     Indication: Non-small cell lung cancer
     Dosage: UNK
  7. LAZERTINIB [Suspect]
     Active Substance: LAZERTINIB
     Indication: Non-small cell lung cancer
     Dosage: UNK
  8. AMIVANTAMAB [Suspect]
     Active Substance: AMIVANTAMAB
     Indication: Non-small cell lung cancer
     Dosage: UNK
  9. GEFITINIB [Suspect]
     Active Substance: GEFITINIB
     Indication: Non-small cell lung cancer

REACTIONS (2)
  - Anal ulcer [Recovered/Resolved]
  - Ulcer [Unknown]
